FAERS Safety Report 9036301 (Version 1)
Quarter: 2013Q1

REPORT INFORMATION
  Report Type: Spontaneous
  Country: US (occurrence: None)
  Receive Date: 20130117
  Receipt Date: 20130117
  Transmission Date: 20140127
  Serious: Yes (Life-Threatening)
  Sender: FDA-Public Use
  Company Number: None

PATIENT
  Sex: Male
  Weight: 63.5 kg

DRUGS (1)
  1. LAMICTAL 25MG [Suspect]
     Dosage: 25 MG, ORAL, 1 QD X9
     Route: 048
     Dates: start: 20121219, end: 20130104

REACTIONS (4)
  - Rash generalised [None]
  - Swollen tongue [None]
  - Pharyngeal oedema [None]
  - Orbital oedema [None]
